FAERS Safety Report 6306290-2 (Version None)
Quarter: 2009Q3

REPORT INFORMATION
  Report Type: 
  Country: None (occurrence: None)
  Receive Date: 20090812
  Receipt Date: 20090806
  Transmission Date: 20100115
  Serious: Yes (Death, Hospitalization)
  Sender: FDA-Public Use
  Company Number: PHHO2009KR09753

PATIENT
  Sex: Male
  Weight: 71.65 kg

DRUGS (1)
  1. RAD 666 RAD+TAB [Suspect]
     Indication: GASTRIC CANCER
     Dosage: 10 MG/DAY
     Route: 048
     Dates: start: 20090723, end: 20090730

REACTIONS (3)
  - ABNORMAL BEHAVIOUR [None]
  - ASTHENIA [None]
  - DYSPNOEA [None]
